FAERS Safety Report 5290042-9 (Version None)
Quarter: 2007Q1

REPORT INFORMATION
  Report Type: 
  Country: None (occurrence: None)
  Receive Date: 20070330
  Receipt Date: 20070323
  Transmission Date: 20070707
  Serious: Yes (Disabling)
  Sender: FDA-Public Use
  Company Number: GXKR2007GB02829

PATIENT
  Age: 35 Year
  Sex: Male
  Weight: 89 kg

DRUGS (4)
  1. CITALOPRAM HYDROBROMIDE [Suspect]
     Indication: ANXIETY
     Dosage: 20 MG, ORAL, 40 MG, ORAL
     Route: 048
     Dates: start: 20060227, end: 20061031
  2. CITALOPRAM HYDROBROMIDE [Suspect]
     Indication: ANXIETY
     Dosage: 20 MG, ORAL, 40 MG, ORAL
     Route: 048
     Dates: start: 20061031, end: 20070214
  3. PROPRANOLOL [Concomitant]
  4. ZOPICLONE (ZOPICLONE) [Concomitant]

REACTIONS (1)
  - MUSCLE TWITCHING [None]
